FAERS Safety Report 24612730 (Version 1)
Quarter: 2024Q4

REPORT INFORMATION
  Report Type: Spontaneous
  Country: US (occurrence: None)
  Receive Date: 20241112
  Receipt Date: 20241112
  Transmission Date: 20250114
  Serious: Yes (unspecified)
  Sender: Public
  Company Number: None

PATIENT
  Age: 70 Year
  Sex: Male

DRUGS (1)
  1. DAPTOMYCIN IN SODIUM CHLORIDE [Suspect]
     Active Substance: DAPTOMYCIN
     Indication: Peritonitis
     Dosage: 600.00 MG DAILY INTRVAENOUS?
     Route: 042
     Dates: start: 20240720, end: 20240721

REACTIONS (2)
  - Eosinophilic pneumonia [None]
  - Pleural effusion [None]

NARRATIVE: CASE EVENT DATE: 20240721
